FAERS Safety Report 7139244-7 (Version None)
Quarter: 2010Q4

REPORT INFORMATION
  Report Type: 
  Country: None (occurrence: None)
  Receive Date: 20101206
  Receipt Date: 20101129
  Transmission Date: 20110411
  Serious: Yes (Other)
  Sender: FDA-Public Use
  Company Number: BR-ROCHE-745015

PATIENT
  Sex: Male
  Weight: 67 kg

DRUGS (4)
  1. BONIVA [Suspect]
     Indication: OSTEOPENIA
     Dosage: EACH ON AN EMPTY STOMACH. OTHER INDICATION: ARTHROSIS
     Route: 048
     Dates: start: 20100801
  2. ZETIA [Suspect]
     Indication: BLOOD CHOLESTEROL ABNORMAL
     Route: 065
  3. ZETSIM [Suspect]
     Indication: BLOOD CHOLESTEROL ABNORMAL
     Dosage: DOSE: 10+20 MG
     Route: 065
  4. ARTRODAR [Concomitant]

REACTIONS (6)
  - BONE PAIN [None]
  - DEPRESSION [None]
  - GAIT DISTURBANCE [None]
  - INSOMNIA [None]
  - IRRITABILITY [None]
  - MYALGIA [None]
